FAERS Safety Report 24613201 (Version 1)
Quarter: 2024Q4

REPORT INFORMATION
  Report Type: Spontaneous
  Country: US (occurrence: None)
  Receive Date: 20241112
  Receipt Date: 20241112
  Transmission Date: 20250115
  Serious: Yes (Life-Threatening)
  Sender: Public
  Company Number: None

PATIENT
  Age: 65 Year
  Sex: Female
  Weight: 59 kg

DRUGS (2)
  1. DOFETILIDE [Suspect]
     Active Substance: DOFETILIDE
     Indication: Atrial fibrillation
     Dosage: 500 UG  TWICE A DAY ORAL?
     Route: 048
     Dates: start: 20241106, end: 20241106
  2. LASIX [Suspect]
     Active Substance: FUROSEMIDE

REACTIONS (9)
  - Ventricular tachycardia [None]
  - Pulse absent [None]
  - Hypotension [None]
  - Electrocardiogram QT prolonged [None]
  - Atrioventricular block second degree [None]
  - Atrial enlargement [None]
  - Ventricular hypertrophy [None]
  - Bradycardia [None]
  - Electrocardiogram QRS complex abnormal [None]

NARRATIVE: CASE EVENT DATE: 20241107
